FAERS Safety Report 16151728 (Version 1)
Quarter: 2019Q2

REPORT INFORMATION
  Report Type: Spontaneous
  Country: CA (occurrence: CA)
  Receive Date: 20190403
  Receipt Date: 20190403
  Transmission Date: 20190711
  Serious: Yes (Hospitalization, Other)
  Sender: FDA-Public Use
  Company Number: CA-JNJFOC-20190335216

PATIENT
  Age: 57 Year
  Sex: Male
  Weight: 106 kg

DRUGS (2)
  1. STELARA [Suspect]
     Active Substance: USTEKINUMAB
     Indication: CROHN^S DISEASE
     Route: 058
  2. AZITHROMYCIN ANHYDROUS. [Concomitant]
     Active Substance: AZITHROMYCIN ANHYDROUS
     Route: 065

REACTIONS (9)
  - General physical condition decreased [Unknown]
  - Hypertrophic cardiomyopathy [Unknown]
  - Dyspnoea [Unknown]
  - Cardiac failure [Unknown]
  - Product use issue [Unknown]
  - Ejection fraction decreased [Unknown]
  - Congestive cardiomyopathy [Unknown]
  - Viral infection [Unknown]
  - Off label use [Unknown]
